FAERS Safety Report 8064695-6 (Version None)
Quarter: 2012Q1

REPORT INFORMATION
  Report Type: 
  Country: None (occurrence: None)
  Receive Date: 20120123
  Receipt Date: 20120119
  Transmission Date: 20120608
  Serious: Yes (Other)
  Sender: FDA-Public Use
  Company Number: US-VERTEX PHARMACEUTICALS INC.-AE-2012-001076

PATIENT
  Sex: Male

DRUGS (3)
  1. RIBAVIRIN [Concomitant]
     Indication: HEPATITIS C
     Route: 048
  2. INCIVEK [Suspect]
     Indication: HEPATITIS C
     Route: 048
  3. PEG-INTRON [Concomitant]
     Indication: HEPATITIS C
     Route: 058

REACTIONS (10)
  - ABNORMAL DREAMS [None]
  - LIMB DISCOMFORT [None]
  - MORBID THOUGHTS [None]
  - RASH GENERALISED [None]
  - DRY THROAT [None]
  - ARTHRALGIA [None]
  - ANGER [None]
  - PERIPHERAL COLDNESS [None]
  - DIZZINESS [None]
  - PALLOR [None]
